FAERS Safety Report 5085427-X (Version None)
Quarter: 2006Q3

REPORT INFORMATION
  Report Type: 
  Country: None (occurrence: None)
  Receive Date: 20060815
  Receipt Date: 20060802
  Transmission Date: 20061208
  Serious: Yes (Death, Hospitalization)
  Sender: FDA-Public Use
  Company Number: 200610259

PATIENT
  Age: 81 Year
  Sex: Male
  Weight: 86 kg

DRUGS (4)
  1. CARIMUNE [Suspect]
     Indication: IDIOPATHIC THROMBOCYTOPENIC PURPURA
     Dosage: 34 G DAILY IV
     Route: 042
     Dates: start: 20060612, end: 20060613
  2. LOPRESSOR [Concomitant]
  3. PREDNISONE TAB [Concomitant]
  4. PROTONIX [Concomitant]

REACTIONS (14)
  - AGITATION [None]
  - ATRIAL FIBRILLATION [None]
  - CONFUSIONAL STATE [None]
  - HYPOGLYCAEMIA [None]
  - HYPOTENSION [None]
  - ILL-DEFINED DISORDER [None]
  - INFUSION RELATED REACTION [None]
  - METABOLIC ACIDOSIS [None]
  - MUSCULOSKELETAL PAIN [None]
  - PULMONARY CONGESTION [None]
  - SEPSIS [None]
  - SPLENOMEGALY [None]
  - TACHYCARDIA [None]
  - WHITE BLOOD CELL COUNT INCREASED [None]
